FAERS Safety Report 20859225 (Version 2)
Quarter: 2022Q3

REPORT INFORMATION
  Report Type: Spontaneous
  Country: AU (occurrence: AU)
  Receive Date: 20220523
  Receipt Date: 20220726
  Transmission Date: 20221027
  Serious: Yes (Hospitalization, Other)
  Sender: FDA-Public Use
  Company Number: AU-NOVARTISPH-NVSC2022AU115464

PATIENT
  Sex: Male

DRUGS (1)
  1. KESIMPTA [Suspect]
     Active Substance: OFATUMUMAB
     Indication: Product used for unknown indication
     Dosage: 20 MG (SOLUTION, INITIATION PHASE WEEKS 0,1,2,4 THEN EVERY 28 DAYS)
     Route: 058

REACTIONS (3)
  - Thrombosis [Unknown]
  - Lupus-like syndrome [Unknown]
  - Haematoma [Unknown]
